FAERS Safety Report 9332403 (Version 2)
Quarter: 2013Q3

REPORT INFORMATION
  Report Type: Spontaneous
  Country: US (occurrence: US)
  Receive Date: 20130606
  Receipt Date: 20130705
  Transmission Date: 20140515
  Serious: Yes (Other)
  Sender: FDA-Public Use
  Company Number: US-AMGEN-USASP2013038720

PATIENT
  Sex: Male

DRUGS (1)
  1. PROLIA [Suspect]
     Indication: BONE DENSITY DECREASED
     Dosage: UNK
     Dates: start: 20130228

REACTIONS (7)
  - Pruritus [Not Recovered/Not Resolved]
  - Skin haemorrhage [Unknown]
  - Scratch [Unknown]
  - Skin disorder [Unknown]
  - Skin ulcer [Unknown]
  - Erythema [Unknown]
  - Rash [Unknown]
